FAERS Safety Report 24986418 (Version 2)
Quarter: 2025Q1

REPORT INFORMATION
  Report Type: Report from Study
  Country: US (occurrence: US)
  Receive Date: 20250219
  Receipt Date: 20250224
  Transmission Date: 20250409
  Serious: Yes (Hospitalization)
  Sender: ABBVIE
  Company Number: US-ABBVIE-6109399

PATIENT
  Sex: Male
  Weight: 56.699 kg

DRUGS (1)
  1. RINVOQ [Suspect]
     Active Substance: UPADACITINIB
     Indication: Colitis ulcerative
     Dosage: FORM STRENGTH 30 MG
     Route: 048
     Dates: start: 20230720, end: 202411

REACTIONS (5)
  - Large intestinal haemorrhage [Not Recovered/Not Resolved]
  - Crohn^s disease [Unknown]
  - Inflammation [Not Recovered/Not Resolved]
  - Iron deficiency [Not Recovered/Not Resolved]
  - Immune system disorder [Unknown]
